FAERS Safety Report 6325288-1 (Version None)
Quarter: 2009Q3

REPORT INFORMATION
  Report Type: 
  Country: None (occurrence: None)
  Receive Date: 20090824
  Receipt Date: 20090625
  Transmission Date: 20100115
  Serious: No
  Sender: FDA-Public Use
  Company Number: US-ABBOTT-09P-163-0582355-00

PATIENT
  Sex: Female
  Weight: 106.69 kg

DRUGS (3)
  1. NIASPAN [Suspect]
     Indication: DRUG USE FOR UNKNOWN INDICATION
     Dosage: 500MG QHS
     Dates: start: 20090616
  2. CRESTOR [Concomitant]
     Indication: DRUG USE FOR UNKNOWN INDICATION
  3. MULTIPLE MEDICATIONS [Concomitant]
     Indication: DRUG USE FOR UNKNOWN INDICATION

REACTIONS (1)
  - NAUSEA [None]
